FAERS Safety Report 9007987 (Version 5)
Quarter: 2013Q1

REPORT INFORMATION
  Report Type: Spontaneous
  Country: JP (occurrence: JP)
  Receive Date: 20130110
  Receipt Date: 20130204
  Transmission Date: 20140127
  Serious: Yes (Death, Other)
  Sender: FDA-Public Use
  Company Number: JP-ABBOTT-13P-087-1034563-00

PATIENT
  Age: 58 Year
  Sex: Male
  Weight: 61 kg

DRUGS (17)
  1. SEVOFRANE [Suspect]
     Indication: MAINTENANCE OF ANAESTHESIA
  2. REMIFENTANIL [Suspect]
     Indication: MAINTENANCE OF ANAESTHESIA
     Route: 042
  3. PROPOFOL [Suspect]
     Indication: INDUCTION OF ANAESTHESIA
     Route: 065
  4. FENTANYL [Suspect]
     Indication: INDUCTION OF ANAESTHESIA
     Route: 042
  5. FENTANYL [Suspect]
     Indication: POSTOPERATIVE ANALGESIA
  6. ROCURONIUM [Suspect]
     Indication: INDUCTION OF ANAESTHESIA
     Route: 065
  7. ROPIVACAINE [Concomitant]
     Indication: NERVE BLOCK
     Route: 065
  8. CEFAZOLIN [Concomitant]
     Indication: ANTIBIOTIC THERAPY
     Dosage: 1 GRAM. 2 GRAM DAILY DOSE
     Route: 065
  9. HYDROCORTISONE [Concomitant]
     Indication: STEROID THERAPY
     Route: 065
  10. DEXAMETHASONE [Concomitant]
     Indication: WALDENSTROM^S MACROGLOBULINAEMIA
     Route: 048
  11. ASPIRIN [Concomitant]
     Indication: CARDIOVASCULAR DISORDER
     Route: 048
  12. TRIMETHOPRIM SULFAMETHOXAZOLE [Concomitant]
     Indication: DECREASED IMMUNE RESPONSIVENESS
     Route: 048
  13. OXYGEN [Concomitant]
     Indication: INDUCTION OF ANAESTHESIA
     Route: 065
  14. LINEZOLID [Concomitant]
     Indication: ANTIBIOTIC PROPHYLAXIS
  15. ANTIFUNGAL AGENT [Concomitant]
     Indication: PRODUCT USED FOR UNKNOWN INDICATION
  16. ANTI THROMBIN III [Concomitant]
     Indication: PRODUCT USED FOR UNKNOWN INDICATION
  17. STEROID [Concomitant]
     Indication: PRODUCT USED FOR UNKNOWN INDICATION

REACTIONS (9)
  - Septic shock [Fatal]
  - Ventricular tachycardia [Fatal]
  - Blood pressure decreased [Unknown]
  - Anaemia [Unknown]
  - Disseminated intravascular coagulation [Unknown]
  - Hypoxia [Unknown]
  - Metabolic acidosis [Unknown]
  - Cardio-respiratory arrest [Unknown]
  - Blood glucose decreased [Unknown]
